FAERS Safety Report 15791790 (Version 1)
Quarter: 2019Q1

REPORT INFORMATION
  Report Type: Spontaneous
  Country: US (occurrence: US)
  Receive Date: 20190105
  Receipt Date: 20190105
  Transmission Date: 20190417
  Serious: No
  Sender: FDA-Public Use
  Company Number: US-INTERSECT ENT, INC.-2060901

PATIENT

DRUGS (1)
  1. SINUVA [Suspect]
     Active Substance: MOMETASONE FUROATE
     Route: 006
     Dates: start: 20181203, end: 20181203

REACTIONS (1)
  - Nasal inflammation [Unknown]

NARRATIVE: CASE EVENT DATE: 20181203
